FAERS Safety Report 23705337 (Version 1)
Quarter: 2024Q2

REPORT INFORMATION
  Report Type: Spontaneous
  Country: DE (occurrence: None)
  Receive Date: 20240404
  Receipt Date: 20240404
  Transmission Date: 20240716
  Serious: Yes (Other)
  Sender: FDA-Public Use
  Company Number: 2024A080027

PATIENT
  Sex: Female

DRUGS (1)
  1. TAGRISSO [Suspect]
     Active Substance: OSIMERTINIB
     Indication: Non-small cell lung cancer
     Dosage: 80.0MG UNKNOWN
     Route: 048
     Dates: start: 202309

REACTIONS (2)
  - Neoplasm progression [Unknown]
  - Pneumonitis [Unknown]

NARRATIVE: CASE EVENT DATE: 20240101
